FAERS Safety Report 16245920 (Version 3)
Quarter: 2019Q2

REPORT INFORMATION
  Report Type: Spontaneous
  Country: US (occurrence: US)
  Receive Date: 20190426
  Receipt Date: 20190510
  Transmission Date: 20190711
  Serious: Yes (Hospitalization)
  Sender: FDA-Public Use
  Company Number: US-MALLINCKRODT-T201903110

PATIENT
  Age: 75 Year
  Sex: Female

DRUGS (1)
  1. H.P. ACTHAR [Suspect]
     Active Substance: CORTICOTROPIN
     Indication: PULMONARY SARCOIDOSIS
     Dosage: 80 UNITS, TWICE A WEEK
     Route: 058
     Dates: start: 20190405, end: 20190419

REACTIONS (6)
  - Pneumonia [Recovering/Resolving]
  - Infection [Recovering/Resolving]
  - Myocardial infarction [Recovering/Resolving]
  - Cardiac failure [Recovering/Resolving]
  - Injection site bruising [Unknown]
  - Thrombosis [Recovering/Resolving]

NARRATIVE: CASE EVENT DATE: 201904
